FAERS Safety Report 8817646 (Version 1)
Quarter: 2012Q4

REPORT INFORMATION
  Report Type: 
  Country: US (occurrence: US)
  Receive Date: 20121001
  Receipt Date: 20121001
  Transmission Date: 20130627
  Serious: Yes (Other)
  Sender: FDA-Public Use
  Company Number: US-BAYER-2012-100429

PATIENT
  Sex: Female

DRUGS (1)
  1. MIRENA [Suspect]
     Indication: CONTRACEPTION
     Dosage: 20 mcg/24hr, CONT
     Dates: start: 200708, end: 201208

REACTIONS (4)
  - Amenorrhoea [None]
  - Post procedural haemorrhage [None]
  - Menopause [None]
  - Amenorrhoea [None]
